FAERS Safety Report 23418051 (Version 2)
Quarter: 2024Q1

REPORT INFORMATION
  Report Type: Spontaneous
  Country: JP (occurrence: JP)
  Receive Date: 20240118
  Receipt Date: 20240123
  Transmission Date: 20240410
  Serious: Yes (Other)
  Sender: FDA-Public Use
  Company Number: JP-shionogi-202400214_EX-ADU_P_1

PATIENT
  Age: 60 Year
  Sex: Female

DRUGS (7)
  1. CYCLOPHOSPHAMIDE [Suspect]
     Active Substance: CYCLOPHOSPHAMIDE
     Indication: Triple negative breast cancer
     Dosage: 4 COURSES OF EC CHEMOTHERAPY
     Route: 065
  2. EPIRUBICIN HYDROCHLORIDE [Concomitant]
     Active Substance: EPIRUBICIN HYDROCHLORIDE
     Indication: Triple negative breast cancer
     Dosage: 4 COURSES OF EC CHEMOTHERAPY
     Route: 065
  3. DOCETAXEL [Concomitant]
     Active Substance: DOCETAXEL\DOCETAXEL ANHYDROUS
     Indication: Triple negative breast cancer
     Dosage: 1 COURSE (DTX) CHEMOTHERAPY
     Route: 065
  4. DOCETAXEL [Concomitant]
     Active Substance: DOCETAXEL\DOCETAXEL ANHYDROUS
     Dosage: 3 COURSES, CHEMOTHERAPY
     Route: 065
  5. GIMERACIL\OTERACIL\TEGAFUR [Concomitant]
     Active Substance: GIMERACIL\OTERACIL POTASSIUM\TEGAFUR
     Indication: Triple negative breast cancer
     Dosage: 4 COURSES (S-1), COMBINED DRUG, CHEMOTHERAPY
     Route: 048
  6. ERIBULIN [Concomitant]
     Active Substance: ERIBULIN
     Indication: Triple negative breast cancer
     Dosage: 5 COURSES, CHEMOTHERAPY
     Route: 065
  7. BEVACIZUMAB [Concomitant]
     Active Substance: BEVACIZUMAB
     Indication: Triple negative breast cancer
     Dosage: 5 COURSES, CHEMOTHERAPY, GENETICAL RECOMBINATION
     Route: 065

REACTIONS (9)
  - Pseudocirrhosis [Unknown]
  - Hepatic atrophy [Unknown]
  - Varices oesophageal [Unknown]
  - Hypersplenism [Unknown]
  - Hepatic function abnormal [Unknown]
  - Thrombocytopenia [Recovered/Resolved]
  - Splenomegaly [Unknown]
  - Ascites [Unknown]
  - Liver disorder [Unknown]
